FAERS Safety Report 4898745-2 (Version None)
Quarter: 2006Q1

REPORT INFORMATION
  Report Type: 
  Country: None (occurrence: None)
  Receive Date: 20060127
  Receipt Date: 20060118
  Transmission Date: 20060701
  Serious: Yes (Other)
  Sender: FDA-Public Use
  Company Number: 2006010474

PATIENT
  Age: 93 Year
  Sex: Female

DRUGS (2)
  1. NORVASC [Suspect]
     Dosage: ONCE DAILY
     Dates: start: 19920101, end: 20040101
  2. MIACALCIN [Concomitant]

REACTIONS (4)
  - BODY HEIGHT DECREASED [None]
  - RIB DEFORMITY [None]
  - SPINAL FRACTURE [None]
  - VERTEBROPLASTY [None]
